FAERS Safety Report 4724745-9 (Version None)
Quarter: 2005Q3

REPORT INFORMATION
  Report Type: 
  Country: None (occurrence: None)
  Receive Date: 20050726
  Receipt Date: 20050721
  Transmission Date: 20060218
  Serious: Yes (Other)
  Sender: FDA-Public Use
  Company Number: US-GLAXOSMITHKLINE-A0567196A

PATIENT
  Age: 77 Year
  Sex: Female

DRUGS (7)
  1. WELLBUTRIN [Suspect]
     Indication: DEPRESSION
     Dosage: 150MG PER DAY
     Route: 048
     Dates: start: 20050413, end: 20050427
  2. LIPITOR [Concomitant]
  3. ASPIRIN [Concomitant]
  4. VITAMINS [Concomitant]
  5. GLUCOSAMINE [Concomitant]
  6. CALCIUM GLUCONATE [Concomitant]
  7. ALEVE [Concomitant]

REACTIONS (12)
  - ABDOMINAL PAIN UPPER [None]
  - ANGER [None]
  - ARTHRALGIA [None]
  - CHEST PAIN [None]
  - DRUG INEFFECTIVE [None]
  - EAR HAEMORRHAGE [None]
  - INSOMNIA [None]
  - IRRITABILITY [None]
  - MOUTH ULCERATION [None]
  - MYALGIA [None]
  - RASH GENERALISED [None]
  - SOMNOLENCE [None]
